FAERS Safety Report 10168885 (Version 1)
Quarter: 2014Q2

REPORT INFORMATION
  Report Type: Spontaneous
  Country: IN (occurrence: None)
  Receive Date: 20140509
  Receipt Date: 20140509
  Transmission Date: 20141212
  Serious: Yes (Death, Hospitalization)
  Sender: FDA-Public Use
  Company Number: 2014P1003839

PATIENT
  Age: 60 Year
  Sex: Female

DRUGS (1)
  1. LITHIUM [Suspect]
     Indication: BIPOLAR I DISORDER

REACTIONS (7)
  - Toxicity to various agents [None]
  - Ataxia [None]
  - Tremor [None]
  - Dysarthria [None]
  - Leukocytosis [None]
  - Haemodialysis [None]
  - Cardiac arrest [None]
